FAERS Safety Report 7968419-X (Version None)
Quarter: 2011Q4

REPORT INFORMATION
  Report Type: 
  Country: None (occurrence: None)
  Receive Date: 20111122
  Receipt Date: 20110801
  Transmission Date: 20120403
  Serious: No
  Sender: FDA-Public Use
  Company Number: PHHY2011US69668

PATIENT
  Age: 45 Year
  Sex: Female

DRUGS (8)
  1. VITAMIN D [Concomitant]
  2. GILENYA [Suspect]
     Dosage: 0.5 MG, QD, ORAL
     Route: 048
  3. FAMPRIDINE (FAMPRIDINE) [Concomitant]
  4. FLUOXETINE HYDROCHLORIDE [Concomitant]
  5. BACLOFEN [Concomitant]
  6. VESICARE [Concomitant]
  7. GLUCOSAMINE (GLUCOSAMINE) [Concomitant]
  8. MICROGESTIN (ETHINYLESTRADIOL, FERROUS FUMARATE, NORETHISTERONE ACETAT [Concomitant]

REACTIONS (3)
  - PARAESTHESIA [None]
  - SINUSITIS [None]
  - HYPOAESTHESIA [None]
